FAERS Safety Report 8311659-0 (Version None)
Quarter: 2012Q1

REPORT INFORMATION
  Report Type: 
  Country: None (occurrence: None)
  Receive Date: 20120315
  Receipt Date: 20110121
  Transmission Date: 20120608
  Serious: Yes (Other)
  Sender: FDA-Public Use
  Company Number: PHHY2011US01334

PATIENT
  Age: 61 Year
  Sex: Male
  Weight: 63.5 kg

DRUGS (7)
  1. SEROQUEL [Concomitant]
  2. BACLOFEN [Concomitant]
  3. VITAMIN D [Concomitant]
  4. GILENYA [Suspect]
     Indication: MULTIPLE SCLEROSIS
     Dosage: 0.5 MG, QD, ORAL ; 0.5 MG, QD, ORAL
     Route: 048
     Dates: start: 20101214
  5. GILENYA [Suspect]
     Indication: MULTIPLE SCLEROSIS
     Dosage: 0.5 MG, QD, ORAL ; 0.5 MG, QD, ORAL
     Route: 048
     Dates: start: 20101209
  6. ARICEPT [Concomitant]
  7. NORTRIPTYLINE HCL [Concomitant]

REACTIONS (1)
  - WHITE BLOOD CELL COUNT DECREASED [None]
